FAERS Safety Report 7250617-4 (Version None)
Quarter: 2011Q1

REPORT INFORMATION
  Report Type: 
  Country: None (occurrence: None)
  Receive Date: 20110128
  Receipt Date: 20110118
  Transmission Date: 20110831
  Serious: Yes (Other)
  Sender: FDA-Public Use
  Company Number: PHHY2011GB03833

PATIENT
  Sex: Female

DRUGS (1)
  1. ALBUTEROL [Suspect]
     Dosage: 100 MCG, 02 PUFFS

REACTIONS (1)
  - ASTHMA [None]
